FAERS Safety Report 12692379 (Version 1)
Quarter: 2016Q3

REPORT INFORMATION
  Report Type: Spontaneous
  Country: US (occurrence: US)
  Receive Date: 20160828
  Receipt Date: 20160828
  Transmission Date: 20161109
  Serious: No
  Sender: FDA-Public Use
  Company Number: US-ASTRAZENECA-2016SE85436

PATIENT
  Age: 57 Year
  Sex: Female

DRUGS (6)
  1. TRIAMTER-HCTZ [Concomitant]
     Indication: FLUID RETENTION
  2. LEVOTHYROXINE. [Concomitant]
     Active Substance: LEVOTHYROXINE
     Indication: THYROID DISORDER
  3. LISINOPRIL. [Suspect]
     Active Substance: LISINOPRIL
     Indication: BLOOD PRESSURE ABNORMAL
     Route: 048
  4. ESOMEPRAZOLE [Suspect]
     Active Substance: ESOMEPRAZOLE
     Indication: HIATUS HERNIA
     Dosage: GENERIC
     Route: 048
  5. CELEBREX [Suspect]
     Active Substance: CELECOXIB
     Indication: EXOSTOSIS
     Route: 048
  6. VERAPAMIL HCL [Concomitant]
     Active Substance: VERAPAMIL HYDROCHLORIDE
     Indication: BLOOD PRESSURE ABNORMAL

REACTIONS (6)
  - Spinal osteoarthritis [Not Recovered/Not Resolved]
  - Drug ineffective [Unknown]
  - Scoliosis [Unknown]
  - Arthritis [Not Recovered/Not Resolved]
  - Product use issue [Unknown]
  - Vitamin D decreased [Unknown]

NARRATIVE: CASE EVENT DATE: 201412
